FAERS Safety Report 6440140-9 (Version None)
Quarter: 2009Q4

REPORT INFORMATION
  Report Type: 
  Country: None (occurrence: None)
  Receive Date: 20091113
  Receipt Date: 20090113
  Transmission Date: 20100525
  Serious: No
  Sender: FDA-Public Use
  Company Number: A0768681A

PATIENT

DRUGS (2)
  1. COREG [Suspect]
     Indication: DRUG USE FOR UNKNOWN INDICATION
  2. UNKNOWN MEDICATION [Concomitant]

REACTIONS (1)
  - LIBIDO DISORDER [None]
